FAERS Safety Report 8419259-9 (Version None)
Quarter: 2012Q2

REPORT INFORMATION
  Report Type: 
  Country: None (occurrence: None)
  Receive Date: 20120607
  Receipt Date: 20120601
  Transmission Date: 20120825
  Serious: Yes (Death, Hospitalization, Other)
  Sender: FDA-Public Use
  Company Number: US-SANOFI-AVENTIS-200621984GDDC

PATIENT
  Age: 64 Year
  Sex: Male
  Weight: 122.47 kg

DRUGS (8)
  1. DOC-Q-LACE [Concomitant]
  2. LISINOPRIL [Concomitant]
  3. CETUXIMAB [Suspect]
     Indication: HEAD AND NECK CANCER
     Dosage: FOR 120 MINUTED ON DAY 1
     Route: 042
     Dates: start: 20061009, end: 20061030
  4. NIFEDIPINE [Concomitant]
  5. DOCETAXEL [Suspect]
     Indication: HEAD AND NECK CANCER
     Route: 042
     Dates: start: 20061009, end: 20061030
  6. ALL OTHER THERAPEUTIC PRODUCTS [Suspect]
     Indication: HEAD AND NECK CANCER
     Dosage: DOSE AS USED: EXTERNAL BEAM, 1MRT 2 GY/DAY IS GIVEN TO INVOLVED AREAS OVER 5.5-6.5 WEEKS
     Dates: end: 20061130
  7. LOVASTATIN [Concomitant]
  8. OXYCODONE HCL [Concomitant]
     Dosage: DOSE AS USED: 5/325 MG 1-2 TABLETS Q4H PRN MG

REACTIONS (8)
  - CHEST PAIN [None]
  - ORAL PAIN [None]
  - DECREASED APPETITE [None]
  - DYSPNOEA [None]
  - MUCOSAL INFLAMMATION [None]
  - MYOCARDIAL INFARCTION [None]
  - PNEUMONIA [None]
  - CONJUNCTIVITIS [None]
